FAERS Safety Report 18133132 (Version 2)
Quarter: 2020Q3

REPORT INFORMATION
  Report Type: Spontaneous
  Country: BY (occurrence: BY)
  Receive Date: 20200811
  Receipt Date: 20200817
  Transmission Date: 20201103
  Serious: Yes (Death, Hospitalization)
  Sender: FDA-Public Use
  Company Number: BY-JNJFOC-20200804240

PATIENT
  Age: 65 Year
  Sex: Male
  Weight: 53 kg

DRUGS (6)
  1. CLOFAZIMINE [Suspect]
     Active Substance: CLOFAZIMINE
     Indication: TUBERCULOSIS
     Dosage: DOSE? 100
     Route: 048
     Dates: start: 20190502, end: 20200621
  2. SIRTURO [Suspect]
     Active Substance: BEDAQUILINE FUMARATE
     Indication: TUBERCULOSIS
     Dosage: DOSE? 200
     Route: 048
     Dates: start: 20190502, end: 20200621
  3. DELAMANID [Suspect]
     Active Substance: DELAMANID
     Indication: TUBERCULOSIS
     Dosage: DOSE? 200
     Route: 048
     Dates: start: 20190502, end: 20200621
  4. IMIPENEM [Suspect]
     Active Substance: IMIPENEM
     Indication: TUBERCULOSIS
     Route: 065
  5. LINEZOLID. [Suspect]
     Active Substance: LINEZOLID
     Indication: TUBERCULOSIS
     Dosage: DOSE? 300
     Route: 048
     Dates: start: 20190502, end: 20200621
  6. AMOXICILINA?CLAVULANICO            /00756801/ [Suspect]
     Active Substance: AMOXICILLIN\CLAVULANATE POTASSIUM
     Indication: TUBERCULOSIS
     Route: 065

REACTIONS (4)
  - Off label use [Unknown]
  - Carbon monoxide poisoning [Fatal]
  - Intentional product use issue [Unknown]
  - Alcohol poisoning [Fatal]

NARRATIVE: CASE EVENT DATE: 20200621
